FAERS Safety Report 7371933-1 (Version None)
Quarter: 2011Q1

REPORT INFORMATION
  Report Type: 
  Country: None (occurrence: None)
  Receive Date: 20110324
  Receipt Date: 20100713
  Transmission Date: 20110831
  Serious: No
  Sender: FDA-Public Use
  Company Number: US-BAUSCH-2010BL003788

PATIENT
  Age: 77 Year
  Sex: Female

DRUGS (2)
  1. FLUNISOLIDE [Suspect]
     Indication: HOUSE DUST ALLERGY
     Route: 045
     Dates: start: 20100703
  2. FLUNISOLIDE [Suspect]
     Route: 045
     Dates: end: 20100810

REACTIONS (3)
  - NASAL DISCOMFORT [None]
  - APPLICATION SITE PAIN [None]
  - RASH PAPULAR [None]
